FAERS Safety Report 7439428-4 (Version None)
Quarter: 2011Q2

REPORT INFORMATION
  Report Type: 
  Country: None (occurrence: None)
  Receive Date: 20110427
  Receipt Date: 20110419
  Transmission Date: 20111010
  Serious: Yes (Hospitalization)
  Sender: FDA-Public Use
  Company Number: JP-ASTELLAS-2011JP001693

PATIENT
  Sex: Female
  Weight: 47 kg

DRUGS (17)
  1. PROGRAF [Suspect]
     Indication: RHEUMATOID ARTHRITIS
     Dosage: 1 MG, UID/QD
     Route: 048
     Dates: start: 20090901
  2. LIPOZART [Concomitant]
     Indication: HYPERLIPIDAEMIA
     Dosage: 10 MG, UID/QD
     Route: 048
     Dates: start: 20090901
  3. TELMISARTAN [Suspect]
     Indication: HYPERTENSION
     Dosage: 1 DF, UID/QD
     Route: 048
     Dates: start: 20101105, end: 20110126
  4. MAGMITT [Concomitant]
     Indication: GASTRITIS PROPHYLAXIS
     Dosage: 500 MG, UID/QD
     Route: 048
     Dates: start: 20090901
  5. SAFILDINE EN [Concomitant]
     Indication: RHEUMATOID ARTHRITIS
     Dosage: 1000 MG, UID/QD
     Route: 048
     Dates: start: 20090901
  6. PAXIL [Concomitant]
     Indication: DEPRESSION
     Dosage: 20 MG, UID/QD
     Route: 048
     Dates: start: 20090901
  7. METHOTREXATE [Suspect]
     Dosage: 5 MG, UID/QD
     Route: 048
     Dates: start: 20110209
  8. CLARITH [Concomitant]
     Indication: BRONCHITIS CHRONIC
     Dosage: 400 MG, UID/QD
     Route: 048
     Dates: start: 20110209
  9. METHOTREXATE [Suspect]
     Indication: RHEUMATOID ARTHRITIS
     Dosage: 2.5 MG, UID/QD
     Route: 048
     Dates: start: 20090901, end: 20110208
  10. MICARDIS [Suspect]
     Dosage: 80 MG, UID/QD
     Route: 048
     Dates: start: 20110209
  11. LEBENIN [Concomitant]
     Indication: DISBACTERIOSIS
     Dosage: 1 G, TID
     Route: 048
     Dates: start: 20090901
  12. MICARDIS [Suspect]
     Indication: HYPERTENSION
     Dosage: 40 MG, UID/QD
     Route: 048
     Dates: start: 20101212, end: 20110208
  13. BENET [Concomitant]
     Indication: OSTEOPOROSIS PROPHYLAXIS
     Dosage: 17.5 MG, WEEKLY
     Route: 048
     Dates: start: 20090901
  14. CALFINA [Concomitant]
     Indication: OSTEOPOROSIS PROPHYLAXIS
     Dosage: 0.5 UG, UID/QD
     Route: 048
     Dates: start: 20090901
  15. ISONIAZID [Concomitant]
     Indication: ANTIBIOTIC PROPHYLAXIS
     Dosage: 200 MG, UID/QD
     Route: 048
     Dates: start: 20090901
  16. MEDROL [Suspect]
     Indication: RHEUMATOID ARTHRITIS
     Dosage: 8 MG, UID/QD
     Route: 048
     Dates: start: 20090901
  17. ETICALM [Concomitant]
     Indication: DEPRESSION
     Dosage: 1 MG, UID/QD
     Route: 048
     Dates: start: 20090901

REACTIONS (4)
  - PNEUMONIA [None]
  - PNEUMONIA ASPIRATION [None]
  - POLYURIA [None]
  - BLOOD GLUCOSE INCREASED [None]
